FAERS Safety Report 18191156 (Version 1)
Quarter: 2020Q3

REPORT INFORMATION
  Report Type: Spontaneous
  Country: GB (occurrence: GB)
  Receive Date: 20200825
  Receipt Date: 20200825
  Transmission Date: 20201103
  Serious: Yes (Hospitalization)
  Sender: FDA-Public Use
  Company Number: GB-ALNYLAM PHARMACEUTICALS, INC.-ALN-2020-001423

PATIENT

DRUGS (1)
  1. ONPATTRO [Suspect]
     Active Substance: PATISIRAN SODIUM
     Indication: HEREDITARY NEUROPATHIC AMYLOIDOSIS
     Dosage: 21.6 MILLIGRAM, Q3W
     Route: 042
     Dates: start: 20200706

REACTIONS (6)
  - Infusion site swelling [Unknown]
  - Blood potassium decreased [Unknown]
  - Pain in extremity [Unknown]
  - Infusion site extravasation [Unknown]
  - Device dislocation [Unknown]
  - Hypotension [Unknown]
